FAERS Safety Report 5770808-9 (Version None)
Quarter: 2008Q2

REPORT INFORMATION
  Report Type: 
  Country: None (occurrence: None)
  Receive Date: 20080613
  Receipt Date: 20080514
  Transmission Date: 20081010
  Serious: No
  Sender: FDA-Public Use
  Company Number: US-ABBOTT-08P-163-0451943-00

PATIENT
  Sex: Female
  Weight: 59.474 kg

DRUGS (24)
  1. HUMIRA [Suspect]
     Indication: RHEUMATOID ARTHRITIS
     Route: 058
     Dates: start: 20061001, end: 20070809
  2. HUMIRA [Suspect]
     Route: 058
     Dates: start: 20071024, end: 20080401
  3. HUMIRA [Suspect]
     Route: 058
     Dates: start: 20080422
  4. CELECOXIB [Suspect]
     Indication: RHEUMATOID ARTHRITIS
     Route: 048
     Dates: start: 20061101, end: 20070801
  5. AZATHIOPRINE [Concomitant]
     Indication: RHEUMATOID ARTHRITIS
     Route: 048
     Dates: end: 20070801
  6. DEPROMEDROL INJECTION [Concomitant]
     Indication: RHEUMATOID ARTHRITIS
     Dosage: RIGHT KNEE AND LEFT SHOULDER
     Route: 050
     Dates: start: 20080326, end: 20080326
  7. TERIPARATIDE [Concomitant]
     Indication: RHEUMATOID ARTHRITIS
     Dosage: 750 MCG/3 ML
     Route: 050
     Dates: start: 20070501, end: 20070801
  8. TERIPARATIDE [Concomitant]
     Dosage: 750 MCG/3 ML
     Route: 050
     Dates: start: 20070901
  9. IMURAN - GENERIC [Concomitant]
     Indication: RHEUMATOID ARTHRITIS
     Route: 048
     Dates: start: 20070901
  10. PREGABALIN [Concomitant]
     Indication: RHEUMATOID ARTHRITIS
     Route: 048
     Dates: start: 20070501, end: 20070801
  11. PREGABALIN [Concomitant]
     Route: 048
     Dates: start: 20070901
  12. ASPIRIN [Concomitant]
     Indication: CARDIOVASCULAR EVENT PROPHYLAXIS
     Route: 048
     Dates: end: 20070801
  13. ASPIRIN [Concomitant]
     Route: 048
     Dates: start: 20070901
  14. DARVOCET-N GENERIC [Concomitant]
     Indication: PAIN
     Dosage: UP TO 6 DAILY, USUALLY TAKES 5
     Route: 048
     Dates: start: 19960101
  15. ADVIL LIQUID GEL [Concomitant]
     Indication: PAIN
     Dosage: SUPPLEMENT FOR DARVOCET.  200 MG IF PAIN NOT BETTER 1 HOUR AFTER TAKING DARVOCET
     Route: 048
     Dates: start: 20080421
  16. LEVSIN - GENERIC [Concomitant]
     Indication: IRRITABLE BOWEL SYNDROME
     Route: 048
     Dates: start: 20010101
  17. AMBIEN [Concomitant]
     Indication: SLEEP DISORDER THERAPY
     Route: 048
  18. BENTYL - GENERIC [Concomitant]
     Indication: IRRITABLE BOWEL SYNDROME
     Route: 048
     Dates: start: 20010101
  19. BIOTIN [Concomitant]
     Indication: HAIR GROWTH ABNORMAL
     Route: 048
     Dates: start: 20080501
  20. ASCORBIC ACID [Concomitant]
     Indication: VITAMIN SUPPLEMENTATION
     Route: 048
  21. MULTI-VITAMIN [Concomitant]
     Indication: VITAMIN SUPPLEMENTATION
     Route: 048
  22. CETIRIZINE HYDROCHLORIDE [Concomitant]
     Indication: SEASONAL ALLERGY
     Route: 048
     Dates: start: 20070101
  23. B-KOMPLEX [Concomitant]
     Indication: VITAMIN SUPPLEMENTATION
     Route: 048
  24. VITACAL [Concomitant]
     Indication: VITAMIN SUPPLEMENTATION
     Route: 048

REACTIONS (9)
  - ALOPECIA [None]
  - ARTHRALGIA [None]
  - ARTHRITIS [None]
  - FEELING ABNORMAL [None]
  - FEELING HOT [None]
  - GAIT DISTURBANCE [None]
  - JOINT SWELLING [None]
  - SKIN DISORDER [None]
  - SKIN EXFOLIATION [None]
